FAERS Safety Report 6377494-8 (Version None)
Quarter: 2009Q3

REPORT INFORMATION
  Report Type: 
  Country: None (occurrence: None)
  Receive Date: 20090925
  Receipt Date: 20090918
  Transmission Date: 20100115
  Serious: Yes (Death, Life-Threatening)
  Sender: FDA-Public Use
  Company Number: JP-BAYER-200910925BYL

PATIENT
  Age: 49 Year
  Sex: Male
  Weight: 64 kg

DRUGS (37)
  1. FLUDARA [Suspect]
     Indication: ALLOGENIC BONE MARROW TRANSPLANTATION THERAPY
     Dosage: AS USED: 50 MG  UNIT DOSE: 50 MG
     Route: 042
     Dates: start: 20080620, end: 20080625
  2. SANDIMMUNE [Suspect]
     Indication: PROPHYLAXIS AGAINST GRAFT VERSUS HOST DISEASE
     Dosage: AS USED: 180-60 MG
     Route: 042
     Dates: start: 20080626, end: 20080814
  3. LASIX [Concomitant]
     Indication: RENAL IMPAIRMENT
     Dosage: AS USED: 20 MG
     Route: 042
     Dates: start: 20080619, end: 20080717
  4. CYCLOPHOSPHAMIDE [Concomitant]
     Indication: ALLOGENIC BONE MARROW TRANSPLANTATION THERAPY
     Dosage: AS USED: 3000 MG
     Route: 042
     Dates: start: 20080620, end: 20080620
  5. LYMPHOGLOBULINE [Concomitant]
     Indication: PROPHYLAXIS AGAINST GRAFT VERSUS HOST DISEASE
     Dosage: AS USED: 700 MG
     Route: 042
     Dates: start: 20080624, end: 20080625
  6. METHOTREXATE [Concomitant]
     Indication: PROPHYLAXIS AGAINST GRAFT VERSUS HOST DISEASE
     Dosage: AS USED: 18 MG
     Route: 042
     Dates: start: 20080630, end: 20080630
  7. METHOTREXATE [Concomitant]
     Dosage: AS USED: 18 MG
     Route: 042
     Dates: start: 20080703, end: 20080703
  8. METHOTREXATE [Concomitant]
     Dosage: AS USED: 18 MG
     Route: 042
     Dates: start: 20080708, end: 20080708
  9. METHOTREXATE [Concomitant]
     Dosage: AS USED: 25 MG
     Route: 042
     Dates: start: 20080628, end: 20080628
  10. GRAN [Concomitant]
     Dosage: AS USED: 600 ?G
     Route: 042
     Dates: start: 20080628, end: 20080718
  11. LEVOFLOXACIN [Concomitant]
     Indication: INFECTION PROPHYLAXIS
     Dosage: AS USED: 300 MG
     Route: 048
     Dates: start: 20080619, end: 20080727
  12. ITRIZOLE [Concomitant]
     Indication: INFECTION PROPHYLAXIS
     Dosage: AS USED: 200 MG
     Route: 048
     Dates: start: 20080619, end: 20080727
  13. BAKTAR [Concomitant]
     Indication: INFECTION PROPHYLAXIS
     Dosage: AS USED: 3 DF  UNIT DOSE: 1 DF
     Route: 048
     Dates: start: 20080619, end: 20080626
  14. UROMITEXAN [Concomitant]
     Dosage: AS USED: 4800 MG
     Route: 042
     Dates: start: 20080620, end: 20080620
  15. MEROPEN [Concomitant]
     Indication: INFECTION PROPHYLAXIS
     Dosage: AS USED: 1 G
     Route: 042
     Dates: start: 20080619, end: 20080620
  16. VICCLOX [Concomitant]
     Indication: INFECTION PROPHYLAXIS
     Dosage: AS USED: 500 MG
     Route: 042
     Dates: start: 20080619, end: 20080718
  17. GASTER [Concomitant]
     Dosage: AS USED: 20 MG
     Route: 042
     Dates: start: 20080619, end: 20080727
  18. HEPARIN SODIUM [Concomitant]
     Dosage: AS USED: 3000 U
     Route: 042
     Dates: start: 20080619, end: 20080820
  19. SODIUM BICARBONATE IN PLASTIC CONTAINER [Concomitant]
     Dosage: AS USED: 80 ML
     Route: 042
     Dates: start: 20080620, end: 20080620
  20. URSO 250 [Concomitant]
     Dosage: AS USED: 600 MG
     Route: 048
     Dates: start: 20080619, end: 20080727
  21. HIBON [Concomitant]
     Dosage: AS USED: 120 MG
     Route: 048
     Dates: start: 20080619, end: 20080717
  22. TAKEPRON OD [Concomitant]
     Dosage: AS USED: 15 MG
     Route: 048
     Dates: start: 20080522, end: 20080726
  23. EXCEGRAN [Concomitant]
     Dosage: AS USED: 200 MG
     Route: 048
     Dates: start: 20080529, end: 20080818
  24. EPADEL S [Concomitant]
     Dosage: AS USED: 1800 MG
     Route: 048
     Dates: start: 20080607, end: 20080726
  25. LUPRAC [Concomitant]
     Indication: RENAL DISORDER
     Dosage: AS USED: 4 MG
     Route: 048
     Dates: start: 20080704, end: 20080729
  26. ALDACTONE [Concomitant]
     Indication: RENAL DISORDER
     Dosage: AS USED: 25 MG
     Route: 048
     Dates: start: 20080715, end: 20080726
  27. IMMUNE GLOBULIN INTRAVENOUS (HUMAN) [Concomitant]
     Indication: INFECTION PROPHYLAXIS
     Dosage: AS USED: 5 G
     Route: 042
     Dates: start: 20080626, end: 20080628
  28. OMEGACIN [Concomitant]
     Indication: INFECTION PROPHYLAXIS
     Dosage: AS USED: 1.2 G
     Route: 042
     Dates: start: 20080630, end: 20080710
  29. OMEGACIN [Concomitant]
     Dosage: AS USED: 1.2 G
     Route: 042
     Dates: start: 20080816, end: 20080820
  30. FINIBAX [Concomitant]
     Indication: INFECTION PROPHYLAXIS
     Dosage: AS USED: 0.75 G
     Route: 042
     Dates: start: 20080711, end: 20080801
  31. ORGARAN [Concomitant]
     Indication: INFECTION PROPHYLAXIS
     Dosage: AS USED: 2 ML
     Route: 042
     Dates: start: 20080701, end: 20080717
  32. MAXIPIME [Concomitant]
     Indication: INFECTION PROPHYLAXIS
     Dosage: AS USED: 2 G
     Route: 042
     Dates: start: 20080621, end: 20080629
  33. BROACT [Concomitant]
     Indication: INFECTION PROPHYLAXIS
     Dosage: AS USED: 2 G
     Route: 042
     Dates: start: 20080802, end: 20080815
  34. CONCENTRATED RED CELLS [Concomitant]
     Indication: PACKED RED BLOOD CELL TRANSFUSION
     Route: 042
     Dates: start: 20080624
  35. PLATELETS [Concomitant]
     Indication: PLATELET TRANSFUSION
     Route: 042
     Dates: start: 20080626, end: 20080819
  36. FRESH FROZEN PLASMA [Concomitant]
     Indication: BLOOD PRODUCT TRANSFUSION
     Route: 042
     Dates: start: 20080718, end: 20080819
  37. DENOSINE [Concomitant]
     Indication: INFECTION PROPHYLAXIS
     Route: 042
     Dates: start: 20080719, end: 20080820

REACTIONS (5)
  - DEATH [None]
  - FLUID RETENTION [None]
  - HYPERTENSION [None]
  - HYPERURICAEMIA [None]
  - RENAL IMPAIRMENT [None]
